FAERS Safety Report 25249605 (Version 4)
Quarter: 2025Q2

REPORT INFORMATION
  Report Type: Spontaneous
  Country: US (occurrence: US)
  Receive Date: 20250429
  Receipt Date: 20250522
  Transmission Date: 20250717
  Serious: Yes (Other)
  Sender: ABBVIE
  Company Number: US-ABBVIE-6250793

PATIENT
  Age: 72 Year
  Sex: Female

DRUGS (2)
  1. BOTOX [Suspect]
     Active Substance: ONABOTULINUMTOXINA
     Indication: Migraine
     Route: 030
     Dates: start: 20250411, end: 20250411
  2. TOPIRAMATE [Concomitant]
     Active Substance: TOPIRAMATE
     Indication: Product used for unknown indication

REACTIONS (25)
  - Seizure [Unknown]
  - Injection site pain [Unknown]
  - Musculoskeletal discomfort [Not Recovered/Not Resolved]
  - Spinal osteoarthritis [Unknown]
  - Tinnitus [Unknown]
  - Head injury [Unknown]
  - Mobility decreased [Unknown]
  - Headache [Unknown]
  - Panic reaction [Unknown]
  - Neck pain [Not Recovered/Not Resolved]
  - Hypoacusis [Unknown]
  - Insomnia [Unknown]
  - Osteoporosis [Unknown]
  - Intervertebral disc protrusion [Unknown]
  - Eyelid ptosis [Not Recovered/Not Resolved]
  - Migraine [Not Recovered/Not Resolved]
  - Post-traumatic neck syndrome [Not Recovered/Not Resolved]
  - Multiple allergies [Not Recovered/Not Resolved]
  - Cervical vertebral fracture [Unknown]
  - Suicidal ideation [Unknown]
  - Anxiety [Unknown]
  - Atrophic vulvovaginitis [Unknown]
  - Cerebral haemorrhage [Unknown]
  - Nausea [Unknown]
  - Cognitive disorder [Unknown]

NARRATIVE: CASE EVENT DATE: 20250101
